FAERS Safety Report 21492921 (Version 12)
Quarter: 2024Q3

REPORT INFORMATION
  Report Type: Spontaneous
  Country: US (occurrence: US)
  Receive Date: 20221021
  Receipt Date: 20240918
  Transmission Date: 20241017
  Serious: No
  Sender: PFIZER
  Company Number: US-PFIZER INC-PV202200086536

PATIENT
  Age: 67 Year
  Sex: Female

DRUGS (4)
  1. EUCRISA [Suspect]
     Active Substance: CRISABOROLE
     Indication: Eczema
     Dosage: UNK, 2X/DAY (1 APPLICATION 2 TIMES DAILY AS NEEDED)
     Route: 061
  2. EUCRISA [Suspect]
     Active Substance: CRISABOROLE
     Indication: Pruritus
     Dosage: UNK, 2X/DAY (APPLY TO AFFECTED AREAS/ ITCHY AREAS ALL OVER BODY, TWICE A DAY, AS NEEDED)
     Route: 061
  3. EUCRISA [Suspect]
     Active Substance: CRISABOROLE
     Dosage: QD OR BID
  4. EUCRISA [Suspect]
     Active Substance: CRISABOROLE
     Dosage: BID PRN (TWICE DAILY AS NEEDED)

REACTIONS (2)
  - Condition aggravated [Unknown]
  - Therapeutic product effect incomplete [Unknown]
